FAERS Safety Report 12177827 (Version 1)
Quarter: 2016Q1

REPORT INFORMATION
  Report Type: Spontaneous
  Country: US (occurrence: US)
  Receive Date: 20160315
  Receipt Date: 20160315
  Transmission Date: 20160526
  Serious: No
  Sender: FDA-Public Use
  Company Number: US-RECORDATI RARE DISEASES-US-R13005-15-00080

PATIENT
  Age: 2 Year
  Sex: Male

DRUGS (4)
  1. MULTIVITAMINS WITH IRON [Concomitant]
     Active Substance: IRON\VITAMINS
     Indication: METAL POISONING
     Route: 065
     Dates: start: 20150609
  2. MIRALAX [Concomitant]
     Active Substance: POLYETHYLENE GLYCOL 3350
     Indication: LAXATIVE SUPPORTIVE CARE
     Route: 048
     Dates: start: 20150609, end: 20150610
  3. CHEMET [Suspect]
     Active Substance: SUCCIMER
     Indication: METAL POISONING
     Route: 048
     Dates: start: 20150610
  4. CHEMET [Suspect]
     Active Substance: SUCCIMER
     Route: 048

REACTIONS (1)
  - Haematuria [Recovered/Resolved]

NARRATIVE: CASE EVENT DATE: 20150611
